FAERS Safety Report 15566594 (Version 2)
Quarter: 2018Q4

REPORT INFORMATION
  Report Type: Spontaneous
  Country: US (occurrence: US)
  Receive Date: 20181030
  Receipt Date: 20181219
  Transmission Date: 20190205
  Serious: No
  Sender: FDA-Public Use
  Company Number: US-GLAXOSMITHKLINE-US2018192656

PATIENT
  Age: 71 Year
  Sex: Female

DRUGS (1)
  1. ADVAIR DISKUS [Suspect]
     Active Substance: FLUTICASONE PROPIONATE\SALMETEROL XINAFOATE
     Indication: ASTHMA
     Dosage: 1 PUFF(S), BID
     Route: 055
     Dates: start: 201804

REACTIONS (7)
  - Ill-defined disorder [Unknown]
  - Wheezing [Unknown]
  - Product complaint [Unknown]
  - Cough [Unknown]
  - Medical procedure [Unknown]
  - Drug ineffective [Unknown]
  - Secretion discharge [Unknown]

NARRATIVE: CASE EVENT DATE: 20181007
